FAERS Safety Report 5177937-1 (Version None)
Quarter: 2006Q4

REPORT INFORMATION
  Report Type: 
  Country: None (occurrence: None)
  Receive Date: 20061208
  Receipt Date: 20061201
  Transmission Date: 20070319
  Serious: Yes (Other)
  Sender: FDA-Public Use
  Company Number: 2006144206

PATIENT
  Age: 76 Year

DRUGS (6)
  1. DETRUSITOL (TOLTERODINE -TARTARATE ) [Suspect]
     Indication: URINARY INCONTINENCE
     Dosage: 2 MG (2 MG, 1 IN 1 D), ORAL
     Route: 048
     Dates: start: 20041101
  2. GLUCOVANCE [Concomitant]
  3. ENALAPRIL MALEATE [Concomitant]
  4. EUTHYROX (LEVOTHYROXINE SODUUM) [Concomitant]
  5. OS-CAL (CALCIUM, ERGOCALCIFEROL) [Concomitant]
  6. ALENDRONATE SODIUM [Concomitant]

REACTIONS (6)
  - DISEASE PROGRESSION [None]
  - FALL [None]
  - PAIN [None]
  - SPINAL DISORDER [None]
  - URINARY INCONTINENCE [None]
  - URINARY TRACT INFECTION [None]
